FAERS Safety Report 6997301-X (Version None)
Quarter: 2010Q3

REPORT INFORMATION
  Report Type: 
  Country: None (occurrence: None)
  Receive Date: 20100918
  Receipt Date: 20090930
  Transmission Date: 20110219
  Serious: No
  Sender: FDA-Public Use
  Company Number: US-WYE-H11332709

PATIENT
  Sex: Female
  Weight: 54.48 kg

DRUGS (4)
  1. EFFEXOR XR [Suspect]
     Indication: DEPRESSION
     Route: 048
     Dates: start: 20090906
  2. EFFEXOR XR [Suspect]
     Indication: ANXIETY
  3. VITAMINS WITH MINERALS [Concomitant]
  4. XANAX [Concomitant]

REACTIONS (1)
  - HYPOACUSIS [None]
